FAERS Safety Report 17988035 (Version 1)
Quarter: 2020Q3

REPORT INFORMATION
  Report Type: Spontaneous
  Country: US (occurrence: US)
  Receive Date: 20200706
  Receipt Date: 20200706
  Transmission Date: 20201103
  Serious: No
  Sender: FDA-Public Use
  Company Number: None

PATIENT
  Age: 41 Year
  Sex: Female
  Weight: 76.5 kg

DRUGS (4)
  1. NP THYROID [Concomitant]
     Active Substance: LEVOTHYROXINE\LIOTHYRONINE
  2. SOLOSEC [Suspect]
     Active Substance: SECNIDAZOLE
     Indication: BACTERIAL VAGINOSIS
     Dosage: ?          QUANTITY:1 PACKET;OTHER FREQUENCY:ONCE;?
     Route: 048
     Dates: start: 20200702, end: 20200702
  3. HYDROXYZINE [Concomitant]
     Active Substance: HYDROXYZINE HYDROCHLORIDE
  4. PROGESTERONE. [Concomitant]
     Active Substance: PROGESTERONE

REACTIONS (8)
  - Diarrhoea [None]
  - Abdominal pain upper [None]
  - Malaise [None]
  - Bedridden [None]
  - Nausea [None]
  - Pelvic pain [None]
  - Asthenopia [None]
  - Influenza like illness [None]

NARRATIVE: CASE EVENT DATE: 20200702
